FAERS Safety Report 9859173 (Version 1)
Quarter: 2014Q1

REPORT INFORMATION
  Report Type: Spontaneous
  Country: GB (occurrence: GB)
  Receive Date: 20140131
  Receipt Date: 20140131
  Transmission Date: 20141002
  Serious: Yes (Other)
  Sender: FDA-Public Use
  Company Number: GB-WATSON-2014-01003

PATIENT
  Age: 14 Year
  Sex: Male

DRUGS (6)
  1. MEPIVACAINE (UNKNOWN) [Suspect]
     Indication: LOCAL ANAESTHESIA
     Dosage: UNK
     Route: 065
  2. MEPIVACAINE (UNKNOWN) [Suspect]
     Dosage: 0.01 ML, UNK
     Route: 058
  3. MEPIVACAINE (UNKNOWN) [Suspect]
     Dosage: 0.1 ML, UNK
     Route: 058
  4. MEPIVACAINE (UNKNOWN) [Suspect]
     Dosage: 0.5 ML, UNK
     Route: 058
  5. CALCIUM HYDROXIDE [Concomitant]
     Indication: PRODUCT USED FOR UNKNOWN INDICATION
     Dosage: UNK
     Route: 065
  6. CHLORHEXIDINE [Concomitant]
     Indication: PRODUCT USED FOR UNKNOWN INDICATION
     Dosage: UNK
     Route: 065

REACTIONS (4)
  - Angioedema [Recovered/Resolved]
  - Urticaria [Recovered/Resolved]
  - Dyspnoea [Recovered/Resolved]
  - Cough [Recovered/Resolved]
